FAERS Safety Report 11330341 (Version 1)
Quarter: 2015Q3

REPORT INFORMATION
  Report Type: Report from Study
  Country: SK (occurrence: SK)
  Receive Date: 20150803
  Receipt Date: 20150803
  Transmission Date: 20151125
  Serious: Yes (Death)
  Sender: FDA-Public Use
  Company Number: US-ASTRAZENECA-2015SE74545

PATIENT
  Age: 64 Year
  Sex: Male
  Weight: 58 kg

DRUGS (4)
  1. SHORT-ACTING BETA2 AGONIST (SABA) [Concomitant]
  2. LABA(LONG-ACTING BETA2 AGONIST)/ICS(INHALED CORTICOSTEROIDS) [Concomitant]
  3. LONG-ACTING ANTICHOLINERGIC (LAMA) [Concomitant]
  4. ROFLUMILAST [Suspect]
     Active Substance: ROFLUMILAST
     Indication: CHRONIC OBSTRUCTIVE PULMONARY DISEASE
     Route: 048
     Dates: start: 20130528, end: 20130920

REACTIONS (1)
  - Death [Fatal]

NARRATIVE: CASE EVENT DATE: 20130921
